FAERS Safety Report 9958366 (Version 1)
Quarter: 2014Q1

REPORT INFORMATION
  Report Type: Report from Study
  Country: US (occurrence: US)
  Receive Date: 20140305
  Receipt Date: 20140305
  Transmission Date: 20141002
  Serious: Yes (Other)
  Sender: FDA-Public Use
  Company Number: US-ROCHE-1347411

PATIENT
  Sex: Female

DRUGS (17)
  1. LUCENTIS [Suspect]
     Indication: AGE-RELATED MACULAR DEGENERATION
     Route: 050
  2. LUCENTIS [Suspect]
     Indication: RETINAL OEDEMA
     Route: 050
     Dates: start: 20120424
  3. LUCENTIS [Suspect]
     Indication: DIABETIC RETINOPATHY
  4. LUCENTIS [Suspect]
     Indication: DIABETIC RETINAL OEDEMA
  5. AVASTIN [Suspect]
     Indication: PRODUCT USED FOR UNKNOWN INDICATION
     Route: 065
  6. VIGAMOX [Concomitant]
     Dosage: 1 GTT PRN OS TID 3 DAYS BEFORE AND 3 DAYS AFTER IN
     Route: 065
  7. ALPHAGAN [Concomitant]
     Dosage: 1 GTT TID OU
     Route: 065
  8. LUMIGAN [Concomitant]
     Dosage: 1 GTT EVERY MORNING OD
     Route: 065
  9. COSOPT [Concomitant]
     Dosage: 1 GTT TWICE A DAY OU
     Route: 065
  10. PROCRIT [Concomitant]
     Route: 065
  11. AMARYL [Concomitant]
  12. REGLAN [Concomitant]
  13. NEXIUM [Concomitant]
  14. FOLIC ACID [Concomitant]
  15. ASA [Concomitant]
     Route: 065
  16. PROPARACAINE [Concomitant]
     Route: 065
  17. BETADINE [Concomitant]
     Route: 065

REACTIONS (5)
  - Blepharitis [Unknown]
  - Intraocular pressure increased [Unknown]
  - Open angle glaucoma [Unknown]
  - Vitreous detachment [Unknown]
  - Prescribed overdose [Unknown]
